FAERS Safety Report 13189596 (Version 1)
Quarter: 2017Q1

REPORT INFORMATION
  Report Type: Spontaneous
  Country: JP (occurrence: JP)
  Receive Date: 20170206
  Receipt Date: 20170206
  Transmission Date: 20170428
  Serious: Yes (Hospitalization)
  Sender: FDA-Public Use
  Company Number: JP-PFIZER INC-2017045187

PATIENT

DRUGS (2)
  1. LEUCOVORIN 5MG [Suspect]
     Active Substance: LEUCOVORIN
     Indication: PROPHYLAXIS
     Dosage: 5 MG, WEEKLY
     Route: 048
  2. METHOTREXATE. [Concomitant]
     Active Substance: METHOTREXATE
     Indication: RHEUMATOID ARTHRITIS
     Dosage: 12 MG, WEEKLY (DIVIDED IN TWO DOSES, TAKEN ON WEDNESDAY AND THURSDAY)
     Route: 048

REACTIONS (1)
  - Fracture [Unknown]
